FAERS Safety Report 8480103-5 (Version None)
Quarter: 2012Q2

REPORT INFORMATION
  Report Type: 
  Country: None (occurrence: None)
  Receive Date: 20120629
  Receipt Date: 20120619
  Transmission Date: 20120825
  Serious: Yes (Death)
  Sender: FDA-Public Use
  Company Number: US-ELI_LILLY_AND_COMPANY-US201205002245

PATIENT
  Age: 24 Year
  Sex: Male

DRUGS (6)
  1. STRATTERA [Suspect]
     Indication: ATTENTION DEFICIT/HYPERACTIVITY DISORDER
     Dosage: 25 MG, UNKNOWN
     Dates: start: 20111202
  2. STRATTERA [Suspect]
     Dosage: 60 MG, UNKNOWN
  3. KLONOPIN [Concomitant]
     Indication: ANXIETY
     Dosage: UNK, PRN
  4. ZYPREXA [Suspect]
     Dosage: 20 MG, QD
  5. STRATTERA [Suspect]
     Dosage: 40 MG, UNKNOWN
  6. STRATTERA [Suspect]
     Dosage: 80 MG, QD
     Dates: start: 20120201

REACTIONS (13)
  - CONFUSIONAL STATE [None]
  - FRUSTRATION [None]
  - BLUNTED AFFECT [None]
  - SEDATION [None]
  - COMPLETED SUICIDE [None]
  - ANXIETY [None]
  - INSOMNIA [None]
  - BRADYPHRENIA [None]
  - DRUG EFFECT DECREASED [None]
  - ABNORMAL BEHAVIOUR [None]
  - DISINHIBITION [None]
  - SOCIAL PHOBIA [None]
  - ANGER [None]
